FAERS Safety Report 9462447 (Version 3)
Quarter: 2014Q3

REPORT INFORMATION
  Report Type: Spontaneous
  Country: US (occurrence: US)
  Receive Date: 20130816
  Receipt Date: 20140807
  Transmission Date: 20150326
  Serious: Yes (Disabling, Other)
  Sender: FDA-Public Use
  Company Number: US-009507513-0212USA01375

PATIENT
  Sex: Male

DRUGS (8)
  1. ZOCOR [Suspect]
     Active Substance: SIMVASTATIN
     Dosage: 10 MG, QD
     Route: 048
     Dates: start: 200104, end: 200107
  2. NIACIN. [Concomitant]
     Active Substance: NIACIN
  3. MK-9359 [Concomitant]
  4. ZOCOR [Suspect]
     Active Substance: SIMVASTATIN
     Dosage: 10 MG, QD
     Route: 048
     Dates: start: 2000, end: 2000
  5. THERAPY UNSPECIFIED [Concomitant]
     Active Substance: UNSPECIFIED INGREDIENT
     Indication: HYPERTENSION
  6. TERAZOSIN HYDROCHLORIDE. [Concomitant]
     Active Substance: TERAZOSIN HYDROCHLORIDE
  7. ZOCOR [Suspect]
     Active Substance: SIMVASTATIN
     Dosage: OFF AND ON FOR ABOUT 10 YEARS
     Route: 048
  8. ZOCOR [Suspect]
     Active Substance: SIMVASTATIN
     Indication: BLOOD CHOLESTEROL INCREASED
     Dosage: 20 MG, QD
     Route: 048
     Dates: start: 1999, end: 2003

REACTIONS (22)
  - Muscle spasms [Not Recovered/Not Resolved]
  - Vision blurred [Unknown]
  - Neck pain [Unknown]
  - Fatigue [Unknown]
  - Heart rate irregular [Not Recovered/Not Resolved]
  - Dizziness [Unknown]
  - Erectile dysfunction [Unknown]
  - Myopathy [Not Recovered/Not Resolved]
  - Drug administration error [Unknown]
  - Myopathy [Not Recovered/Not Resolved]
  - Muscle spasms [Not Recovered/Not Resolved]
  - Myalgia [Not Recovered/Not Resolved]
  - Asthenia [Not Recovered/Not Resolved]
  - Headache [Unknown]
  - Myalgia [Not Recovered/Not Resolved]
  - Muscle spasms [Unknown]
  - Pain in extremity [Unknown]
  - Chest discomfort [Not Recovered/Not Resolved]
  - Muscle injury [Unknown]
  - Muscle injury [Not Recovered/Not Resolved]
  - Pain [Unknown]
  - Myalgia [Unknown]

NARRATIVE: CASE EVENT DATE: 1999
